FAERS Safety Report 25959195 (Version 2)
Quarter: 2025Q4

REPORT INFORMATION
  Report Type: Report from Study
  Country: CA (occurrence: CA)
  Receive Date: 20251025
  Receipt Date: 20251224
  Transmission Date: 20260118
  Serious: No
  Sender: CELLTRION
  Company Number: CA-CELLTRION INC.-2025CA032630

PATIENT

DRUGS (3)
  1. INFLIXIMAB-DYYB [Suspect]
     Active Substance: INFLIXIMAB-DYYB
     Indication: Ankylosing spondylitis
     Dosage: 400 MG EVERY 6 WEEKS - MAINTENANCE
     Route: 042
     Dates: start: 20250627
  2. INFLIXIMAB-DYYB [Suspect]
     Active Substance: INFLIXIMAB-DYYB
     Dosage: 400 MG EVERY 6 WEEKS - MAINTENANCE
     Route: 042
     Dates: start: 20250627
  3. INFLIXIMAB-DYYB [Suspect]
     Active Substance: INFLIXIMAB-DYYB
     Dosage: 400 MG EVERY 6 WEEKS - MAINTENANCE
     Route: 042
     Dates: start: 20251215

REACTIONS (4)
  - Headache [Not Recovered/Not Resolved]
  - Intentional dose omission [Unknown]
  - Off label use [Unknown]
  - Inappropriate schedule of product administration [Recovered/Resolved]

NARRATIVE: CASE EVENT DATE: 20250101
